FAERS Safety Report 7861266-9 (Version None)
Quarter: 2011Q4

REPORT INFORMATION
  Report Type: 
  Country: None (occurrence: None)
  Receive Date: 20111027
  Receipt Date: 20111015
  Transmission Date: 20120403
  Serious: Yes (Other)
  Sender: FDA-Public Use
  Company Number: US-JNJFOC-20111008316

PATIENT
  Sex: Male

DRUGS (2)
  1. BENADRYL [Suspect]
     Route: 065
  2. BENADRYL [Suspect]
     Indication: PRODUCT USED FOR UNKNOWN INDICATION
     Dosage: AS OF 15-OCT-2011, IT IS UNSPECIFIED IF THE PATIENT IS STILL TAKING THE PRODUCT.
     Route: 065

REACTIONS (3)
  - PRODUCT QUALITY ISSUE [None]
  - GASTRIC DILATATION [None]
  - GASTRITIS [None]
